FAERS Safety Report 15663061 (Version 1)
Quarter: 2018Q4

REPORT INFORMATION
  Report Type: Spontaneous
  Country: US (occurrence: US)
  Receive Date: 20181127
  Receipt Date: 20181127
  Transmission Date: 20190205
  Serious: No
  Sender: FDA-Public Use
  Company Number: US-SA-2018SA322657

PATIENT
  Age: 61 Year
  Sex: Male

DRUGS (1)
  1. LANTUS [Suspect]
     Active Substance: INSULIN GLARGINE
     Indication: TYPE 2 DIABETES MELLITUS
     Dosage: 50 U, Q AM AT 05:30
     Route: 065
     Dates: start: 201711

REACTIONS (3)
  - Product contamination with body fluid [Unknown]
  - Product colour issue [Unknown]
  - Device issue [Unknown]
